FAERS Safety Report 5009963-7 (Version None)
Quarter: 2006Q2

REPORT INFORMATION
  Report Type: 
  Country: None (occurrence: None)
  Receive Date: 20060522
  Receipt Date: 20060510
  Transmission Date: 20061013
  Serious: Yes (Other)
  Sender: FDA-Public Use
  Company Number: B0424354A

PATIENT
  Age: 36 Year
  Sex: Male

DRUGS (4)
  1. COMBIVIR [Suspect]
     Indication: HIV INFECTION
  2. EFAVIRENZ [Suspect]
     Indication: HIV INFECTION
  3. CO-TRIMOXAZOLE [Concomitant]
  4. DAPSONE [Concomitant]

REACTIONS (6)
  - ACID FAST BACILLI INFECTION [None]
  - IMMUNE RECONSTITUTION SYNDROME [None]
  - MEDIASTINAL MASS [None]
  - MYCOBACTERIAL INFECTION [None]
  - NECROSIS [None]
  - TUBERCULOSIS [None]
